FAERS Safety Report 5811410-X (Version None)
Quarter: 2008Q3

REPORT INFORMATION
  Report Type: 
  Country: None (occurrence: None)
  Receive Date: 20080715
  Receipt Date: 20080715
  Transmission Date: 20090109
  Serious: No
  Sender: FDA-Public Use
  Company Number: None

PATIENT
  Age: 26 Year
  Sex: Female

DRUGS (1)
  1. VIDAZA [Suspect]
     Dosage: TOPICAL
     Route: 061
     Dates: start: 20080510, end: 20080510

REACTIONS (3)
  - ACCIDENTAL EXPOSURE [None]
  - DRUG EXPOSURE VIA BREAST MILK [None]
  - MEDICATION ERROR [None]
